FAERS Safety Report 15575327 (Version 1)
Quarter: 2018Q4

REPORT INFORMATION
  Report Type: Spontaneous
  Country: BE (occurrence: BE)
  Receive Date: 20181101
  Receipt Date: 20181101
  Transmission Date: 20190205
  Serious: Yes (Other)
  Sender: FDA-Public Use
  Company Number: PHHY2018BE137035

PATIENT
  Age: 39 Year
  Sex: Female

DRUGS (6)
  1. HYDROCORTISONE. [Concomitant]
     Active Substance: HYDROCORTISONE
     Indication: AUTOIMMUNE HEPATITIS
     Dosage: 20 MG, UNK
     Route: 065
  2. TRAVOCORT [Concomitant]
     Indication: PRODUCT USED FOR UNKNOWN INDICATION
     Dosage: INTERMITTENTLY USED VAGINAL CREME
     Route: 067
  3. BUDESONIDE. [Suspect]
     Active Substance: BUDESONIDE
     Indication: AUTOIMMUNE HEPATITIS
     Dosage: 9 MG, UNK
     Route: 065
  4. AZATHIOPRINE. [Suspect]
     Active Substance: AZATHIOPRINE
     Indication: AUTOIMMUNE HEPATITIS
     Dosage: UNK
     Route: 065
  5. HYDROCORTISONE. [Concomitant]
     Active Substance: HYDROCORTISONE
     Dosage: 10 G, UNK
     Route: 065
  6. HYDROCORTISONE. [Concomitant]
     Active Substance: HYDROCORTISONE
     Dosage: 5 MG, UNK
     Route: 065

REACTIONS (11)
  - Autoimmune hepatitis [Unknown]
  - Disturbance in attention [Unknown]
  - Product use in unapproved indication [Unknown]
  - Muscular weakness [Unknown]
  - Weight decreased [Unknown]
  - Disease recurrence [Unknown]
  - Fatigue [Unknown]
  - Amenorrhoea [Unknown]
  - Secondary adrenocortical insufficiency [Unknown]
  - Orthostatic hypotension [Unknown]
  - Hepatic enzyme increased [Unknown]
